FAERS Safety Report 17746709 (Version 7)
Quarter: 2022Q1

REPORT INFORMATION
  Report Type: Spontaneous
  Country: US (occurrence: US)
  Receive Date: 20200505
  Receipt Date: 20220311
  Transmission Date: 20220424
  Serious: Yes (Other)
  Sender: FDA-Public Use
  Company Number: US-PFIZER INC-2020180113

PATIENT
  Age: 70 Year
  Sex: Female
  Weight: 79.819 kg

DRUGS (22)
  1. IBRANCE [Suspect]
     Active Substance: PALBOCICLIB
     Indication: Breast cancer metastatic
     Dosage: DOSE GREATER THAN 100 MG
  2. IBRANCE [Suspect]
     Active Substance: PALBOCICLIB
     Dosage: 100 MG, CYCLIC (ONCE DAILY 21 DAYS ON AND 7 DAYS OFF)
     Route: 048
     Dates: start: 20200327
  3. IBRANCE [Suspect]
     Active Substance: PALBOCICLIB
     Dosage: 100 MG, CYCLIC (ONCE DAILY FOR 21 DAYS ON AND 7 DAYS OFF))
     Route: 048
     Dates: start: 20200401
  4. IBRANCE [Suspect]
     Active Substance: PALBOCICLIB
     Dosage: 100 MG, CYCLIC (ONCE DAILY FOR 21 DAYS ON AND 7 DAYS OFF)
     Route: 048
     Dates: start: 20200401
  5. IBRANCE [Suspect]
     Active Substance: PALBOCICLIB
     Dosage: 75 MG
  6. D-BIOTIN [Concomitant]
     Dosage: UNK(100 % POWDER)
  7. FASLODEX [Concomitant]
     Active Substance: FULVESTRANT
     Dosage: UNK(250 MG/5ML SYRINGE)
  8. LASIX [Concomitant]
     Active Substance: FUROSEMIDE
     Dosage: UNK (20 MG)
  9. METHADONE HYDROCHLORIDE [Concomitant]
     Active Substance: METHADONE HYDROCHLORIDE
     Dosage: UNK(100 % POWDER)
  10. NEURONTIN [Concomitant]
     Active Substance: GABAPENTIN
     Dosage: UNK (100 MG)
  11. OXYCODONE AND ACETAMINOPHEN [Concomitant]
     Active Substance: ACETAMINOPHEN\OXYCODONE HYDROCHLORIDE
     Dosage: UNK
  12. OXYCONTIN [Concomitant]
     Active Substance: OXYCODONE HYDROCHLORIDE
     Dosage: UNK (10 MG TAB ER 12H)
  13. OMEPRAZOLE [Concomitant]
     Active Substance: OMEPRAZOLE
     Dosage: UNK (20 MG)
  14. REQUIP [Concomitant]
     Active Substance: ROPINIROLE HYDROCHLORIDE
     Dosage: UNK (0.25 MG)
  15. TRAZODONE HCL [Concomitant]
     Active Substance: TRAZODONE HYDROCHLORIDE
     Dosage: UNK (100 MG)
  16. VITAMIN D3 [Concomitant]
     Active Substance: CHOLECALCIFEROL
     Dosage: UNK (100 UG)
  17. VITAMIN E [Concomitant]
     Active Substance: .ALPHA.-TOCOPHEROL
     Dosage: UNK (1000 IU)
  18. VITAMIN B12 [Concomitant]
     Active Substance: CYANOCOBALAMIN
     Dosage: UNK (1000 UG)
  19. XGEVA [Concomitant]
     Active Substance: DENOSUMAB
     Indication: Metastases to bone
     Dosage: UNK(120 MG/1.7 VIAL)
     Dates: start: 20200327
  20. XGEVA [Concomitant]
     Active Substance: DENOSUMAB
     Dosage: UNK, MONTHLY
     Dates: start: 20200327
  21. XANAX [Concomitant]
     Active Substance: ALPRAZOLAM
     Dosage: UNK (0.25 MG)
  22. ZOFRAN [Concomitant]
     Active Substance: ONDANSETRON HYDROCHLORIDE
     Dosage: UNK (4 MG)

REACTIONS (11)
  - Urinary retention [Unknown]
  - Neutropenia [Unknown]
  - Weight increased [Unknown]
  - Neoplasm progression [Unknown]
  - White blood cell count decreased [Not Recovered/Not Resolved]
  - Rash [Recovering/Resolving]
  - Peripheral swelling [Unknown]
  - Abdominal distension [Unknown]
  - Fluid retention [Unknown]
  - Chills [Recovering/Resolving]
  - Constipation [Not Recovered/Not Resolved]
